FAERS Safety Report 11001382 (Version 1)
Quarter: 2015Q2

REPORT INFORMATION
  Report Type: Spontaneous
  Country: US (occurrence: US)
  Receive Date: 20150408
  Receipt Date: 20150408
  Transmission Date: 20150821
  Serious: No
  Sender: FDA-Public Use
  Company Number: US-SA-2015SA029400

PATIENT
  Sex: Male

DRUGS (3)
  1. ALLEGRA [Suspect]
     Active Substance: FEXOFENADINE HYDROCHLORIDE
     Indication: PRURITUS
     Dosage: TAKEN FEOM: 5 DAYS AGO
     Route: 048
     Dates: end: 20150306
  2. ALLEGRA [Suspect]
     Active Substance: FEXOFENADINE HYDROCHLORIDE
     Indication: MULTIPLE ALLERGIES
     Dosage: TAKEN FEOM: 5 DAYS AGO
     Route: 048
     Dates: end: 20150306
  3. ALLEGRA [Suspect]
     Active Substance: FEXOFENADINE HYDROCHLORIDE
     Indication: NASAL CONGESTION
     Dosage: TAKEN FEOM: 5 DAYS AGO
     Route: 048
     Dates: end: 20150306

REACTIONS (1)
  - Drug ineffective [Unknown]
